FAERS Safety Report 8533966 (Version 2)
Quarter: 2013Q3

REPORT INFORMATION
  Report Type: Spontaneous
  Country: US (occurrence: None)
  Receive Date: 20120327
  Receipt Date: 20130724
  Transmission Date: 20140515
  Serious: Yes (Hospitalization)
  Sender: FDA-Public Use
  Company Number: PHEH2009US10518

PATIENT
  Age: 74 Year
  Sex: Female

DRUGS (1)
  1. GLEEVEC [Suspect]
     Indication: CHRONIC MYELOID LEUKAEMIA
     Dosage: 400 MG, QD, ORAL ; 400 MG MWT, ORAL
     Route: 048
     Dates: start: 20090406

REACTIONS (6)
  - Renal failure [None]
  - Nausea [None]
  - Diarrhoea [None]
  - Vomiting [None]
  - Abdominal discomfort [None]
  - Dyspepsia [None]
